FAERS Safety Report 8390629-0 (Version None)
Quarter: 2012Q2

REPORT INFORMATION
  Report Type: 
  Country: None (occurrence: None)
  Receive Date: 20120517
  Receipt Date: 20120502
  Transmission Date: 20120825
  Serious: Yes (Other)
  Sender: FDA-Public Use
  Company Number: 2012RR-56235

PATIENT

DRUGS (1)
  1. SIMVASTATIN [Suspect]
     Indication: PRODUCT USED FOR UNKNOWN INDICATION
     Dosage: ORAL
     Route: 048

REACTIONS (5)
  - DYSPEPSIA [None]
  - ABDOMINAL PAIN UPPER [None]
  - MYALGIA [None]
  - MUSCLE DISORDER [None]
  - PAIN [None]
